FAERS Safety Report 23752397 (Version 1)
Quarter: 2024Q2

REPORT INFORMATION
  Report Type: Spontaneous
  Country: IN (occurrence: IN)
  Receive Date: 20240417
  Receipt Date: 20240417
  Transmission Date: 20240715
  Serious: Yes (Other)
  Sender: FDA-Public Use
  Company Number: IN-BAYER-2024A054767

PATIENT
  Age: 50 Year
  Sex: Male

DRUGS (11)
  1. RIVAROXABAN [Suspect]
     Active Substance: RIVAROXABAN
     Indication: Product used for unknown indication
     Route: 048
  2. NICORANDIL [Suspect]
     Active Substance: NICORANDIL
     Dosage: 2 MG
     Route: 042
  3. NICORANDIL [Suspect]
     Active Substance: NICORANDIL
     Dosage: 5 MG, BID
     Route: 048
  4. ASPIRIN [Suspect]
     Active Substance: ASPIRIN
  5. ENOXAPARIN [Suspect]
     Active Substance: ENOXAPARIN
  6. TRIMETAZIDINE [Suspect]
     Active Substance: TRIMETAZIDINE
  7. TICAGRELOR [Suspect]
     Active Substance: TICAGRELOR
  8. ROSUVASTATIN [Concomitant]
     Active Substance: ROSUVASTATIN
  9. BISOPROLOL [Concomitant]
     Active Substance: BISOPROLOL\BISOPROLOL FUMARATE
  10. TELMISARTAN [Concomitant]
     Active Substance: TELMISARTAN
  11. FUROSEMIDE [Concomitant]
     Active Substance: FUROSEMIDE

REACTIONS (2)
  - Haematochezia [Unknown]
  - Frequent bowel movements [Unknown]
